FAERS Safety Report 12761973 (Version 2)
Quarter: 2016Q4

REPORT INFORMATION
  Report Type: Spontaneous
  Country: BR (occurrence: BR)
  Receive Date: 20160920
  Receipt Date: 20161205
  Transmission Date: 20170207
  Serious: Yes (Other)
  Sender: FDA-Public Use
  Company Number: PHHY2016BR122375

PATIENT
  Sex: Female
  Weight: 82.6 kg

DRUGS (6)
  1. VERAPAMIL [Suspect]
     Active Substance: VERAPAMIL HYDROCHLORIDE
     Indication: HYPERTENSION
     Dosage: 240 MG, QD
     Route: 048
  2. ARADOIS H [Concomitant]
     Active Substance: HYDROCHLOROTHIAZIDE\LOSARTAN POTASSIUM
     Indication: HYPERTENSION
     Dosage: 2 DF, QD, 1 MONTH AGO
     Route: 048
  3. HYDROCHLOROTHIAZIDE. [Concomitant]
     Active Substance: HYDROCHLOROTHIAZIDE
     Indication: HYPERTENSION
     Dosage: 0.5 DF, UNK, 1 WEEK AGO
     Route: 048
  4. LEXAPRO [Concomitant]
     Active Substance: ESCITALOPRAM OXALATE
     Indication: DEPRESSION
     Dosage: 1 DF, QD
     Route: 048
     Dates: start: 2016
  5. VERAPAMIL [Suspect]
     Active Substance: VERAPAMIL HYDROCHLORIDE
     Dosage: 120 MG, BID
     Route: 048
  6. LOSARTAN. [Concomitant]
     Active Substance: LOSARTAN
     Indication: HYPERTENSION
     Dosage: 2 DF, QD, 4 OR 5 YEARS AGO
     Route: 048

REACTIONS (9)
  - Blood cholesterol increased [Not Recovered/Not Resolved]
  - Glucose tolerance impaired [Recovering/Resolving]
  - Blood pressure fluctuation [Unknown]
  - Wrong technique in product usage process [Unknown]
  - Kidney angiomyolipoma [Recovering/Resolving]
  - Vitamin D deficiency [Recovered/Resolved]
  - Rheumatoid arthritis [Recovering/Resolving]
  - Blood pressure increased [Recovering/Resolving]
  - Drug administration error [Unknown]
